FAERS Safety Report 18184592 (Version 1)
Quarter: 2020Q3

REPORT INFORMATION
  Report Type: Spontaneous
  Country: US (occurrence: US)
  Receive Date: 20200824
  Receipt Date: 20200824
  Transmission Date: 20201103
  Serious: Yes (Other)
  Sender: FDA-Public Use
  Company Number: US-AUROBINDO-AUR-APL-2013-09852

PATIENT
  Age: 68 Year
  Sex: Female

DRUGS (5)
  1. LORAZEPAM. [Concomitant]
     Active Substance: LORAZEPAM
     Indication: INSOMNIA
  2. PAROXETINE TABLETS USP 40MG [Suspect]
     Active Substance: PAROXETINE
     Indication: ANXIETY
     Dosage: 10 MILLIGRAM, ONCE A DAY
     Route: 048
     Dates: start: 20121221, end: 20130107
  3. GEMCITABINE. [Concomitant]
     Active Substance: GEMCITABINE
     Dosage: CYCLE 2, DAY 2
     Route: 065
     Dates: start: 20121221
  4. GEMCITABINE. [Concomitant]
     Active Substance: GEMCITABINE
     Indication: PANCREATIC CARCINOMA
     Dosage: CYCLE 1, DAY 15
     Route: 065
     Dates: start: 20121221
  5. LORAZEPAM. [Concomitant]
     Active Substance: LORAZEPAM
     Indication: ANXIETY
     Dosage: UNK UNK, FOUR TIMES/DAY (1?2 TABLETS AS NEEDED
     Route: 048

REACTIONS (1)
  - Tremor [Recovered/Resolved]
